FAERS Safety Report 4269395-6 (Version None)
Quarter: 2004Q1

REPORT INFORMATION
  Report Type: 
  Country: None (occurrence: None)
  Receive Date: 20040113
  Receipt Date: 20030730
  Transmission Date: 20041129
  Serious: Yes (Hospitalization, Disabling)
  Sender: FDA-Public Use
  Company Number: WAES 0307USA03459

PATIENT
  Age: 46 Year
  Sex: Male
  Weight: 91 kg

DRUGS (8)
  1. TYLENOL PM [Concomitant]
  2. ASPIRIN [Concomitant]
     Dates: start: 20010101
  3. TAGAMET [Concomitant]
  4. TAGAMET [Concomitant]
     Indication: GASTRIC DISORDER
  5. CARDURA [Concomitant]
     Route: 048
  6. VIOXX [Suspect]
     Indication: ARTHRALGIA
     Route: 048
     Dates: start: 20010601, end: 20010728
  7. VIOXX [Suspect]
     Route: 048
     Dates: start: 20010601, end: 20010728
  8. ZOCOR [Concomitant]
     Indication: HYPERCHOLESTEROLAEMIA
     Route: 048

REACTIONS (20)
  - ACUTE MYOCARDIAL INFARCTION [None]
  - BLOOD PRESSURE DECREASED [None]
  - BLOOD PRESSURE INCREASED [None]
  - CARDIAC FAILURE CONGESTIVE [None]
  - CARDIOMYOPATHY [None]
  - CHEST PAIN [None]
  - CHRONIC FATIGUE SYNDROME [None]
  - CORONARY ARTERY OCCLUSION [None]
  - DEPRESSION [None]
  - DILATATION VENTRICULAR [None]
  - GASTROOESOPHAGEAL REFLUX DISEASE [None]
  - HAEMOGLOBIN DECREASED [None]
  - MITRAL VALVE INCOMPETENCE [None]
  - SINUS TACHYCARDIA [None]
  - SUPRAVENTRICULAR EXTRASYSTOLES [None]
  - ULCER [None]
  - VENTRICULAR EXTRASYSTOLES [None]
  - VENTRICULAR HYPOKINESIA [None]
  - VENTRICULAR SEPTAL DEFECT ACQUIRED [None]
  - WEIGHT DECREASED [None]
